FAERS Safety Report 10287051 (Version 1)
Quarter: 2014Q3

REPORT INFORMATION
  Report Type: Spontaneous
  Country: NL (occurrence: NL)
  Receive Date: 20140709
  Receipt Date: 20140709
  Transmission Date: 20150326
  Serious: Yes (Death)
  Sender: FDA-Public Use
  Company Number: NL-BAYER-2014-099880

PATIENT
  Age: 2 Day
  Sex: Female
  Weight: .9 kg

DRUGS (2)
  1. MIRENA [Suspect]
     Active Substance: LEVONORGESTREL
     Dosage: 20 ?G/D, CONT
     Route: 015
  2. MIRENA [Suspect]
     Active Substance: LEVONORGESTREL
     Dosage: 20 ?G/D, CONT
     Route: 015

REACTIONS (2)
  - Congenital infection [Fatal]
  - Foetal exposure during pregnancy [None]

NARRATIVE: CASE EVENT DATE: 20140429
